FAERS Safety Report 4413549-2 (Version None)
Quarter: 2004Q3

REPORT INFORMATION
  Report Type: 
  Country: None (occurrence: None)
  Receive Date: 20040729
  Receipt Date: 20040716
  Transmission Date: 20050211
  Serious: Yes (Other)
  Sender: FDA-Public Use
  Company Number: 207883

PATIENT
  Age: 75 Year
  Sex: Male
  Weight: 68.5 kg

DRUGS (7)
  1. MABTHERA (RITUXIMAB) [Suspect]
     Dosage: 580 MG, INTRAVENOUS
     Route: 042
     Dates: start: 20030313, end: 20030513
  2. PIRARUBICIN    (PIRARUBICIN) [Concomitant]
  3. VINCRISTINE [Concomitant]
  4. CYCLOPHOSPHAMIDE [Concomitant]
  5. PREDNISONE [Concomitant]
  6. BLOOD TRANSFUSIONS (BLOOD , WHOLE) [Concomitant]
  7. FRESH FROZEN PLASMA [Concomitant]

REACTIONS (4)
  - DISEASE RECURRENCE [None]
  - NEUTROPENIA [None]
  - PERITONITIS [None]
  - THERAPEUTIC EMBOLISATION [None]
